FAERS Safety Report 13184761 (Version 2)
Quarter: 2017Q1

REPORT INFORMATION
  Report Type: Spontaneous
  Country: US (occurrence: US)
  Receive Date: 20170203
  Receipt Date: 20170301
  Transmission Date: 20170428
  Serious: Yes (Hospitalization)
  Sender: FDA-Public Use
  Company Number: US-JNJFOC-20170128194

PATIENT
  Age: 64 Year
  Sex: Female
  Weight: 100.25 kg

DRUGS (24)
  1. DICLOFENAC [Concomitant]
     Active Substance: DICLOFENAC
     Route: 065
  2. ALLOPURINOL. [Concomitant]
     Active Substance: ALLOPURINOL
     Route: 065
  3. RESTORA [Concomitant]
     Route: 065
  4. FLONASE [Concomitant]
     Active Substance: FLUTICASONE PROPIONATE
     Route: 065
  5. MOVANTIK [Concomitant]
     Active Substance: NALOXEGOL OXALATE
     Route: 065
  6. PROTONIX [Concomitant]
     Active Substance: PANTOPRAZOLE SODIUM
     Route: 065
  7. NEURONTIN [Concomitant]
     Active Substance: GABAPENTIN
     Route: 065
  8. VITAMIN D [Concomitant]
     Active Substance: CHOLECALCIFEROL
     Route: 065
  9. DURAGESIC [Suspect]
     Active Substance: FENTANYL
     Indication: PAIN
     Route: 062
  10. HYDROCODONE [Concomitant]
     Active Substance: HYDROCODONE
     Route: 065
  11. TERBINAFINE. [Concomitant]
     Active Substance: TERBINAFINE
     Route: 065
  12. AMLODIPINE [Concomitant]
     Active Substance: AMLODIPINE BESYLATE
     Route: 065
  13. DURAGESIC [Suspect]
     Active Substance: FENTANYL
     Indication: PAIN
     Route: 062
  14. CARISOPRODOL. [Concomitant]
     Active Substance: CARISOPRODOL
     Route: 065
  15. LIDODERM [Concomitant]
     Active Substance: LIDOCAINE
     Route: 065
  16. LOVAZA [Concomitant]
     Active Substance: OMEGA-3-ACID ETHYL ESTERS
     Route: 065
  17. MAGNESIUM [Concomitant]
     Active Substance: MAGNESIUM
     Route: 065
  18. TEMAZEPAM. [Concomitant]
     Active Substance: TEMAZEPAM
     Route: 065
  19. ZYRTEC [Concomitant]
     Active Substance: CETIRIZINE HYDROCHLORIDE
     Route: 065
  20. ETODOLAC. [Concomitant]
     Active Substance: ETODOLAC
     Route: 065
  21. RESTASIS [Concomitant]
     Active Substance: CYCLOSPORINE
     Route: 065
  22. HYDROCHLOROTHIAZIDE. [Concomitant]
     Active Substance: HYDROCHLOROTHIAZIDE
     Route: 065
  23. NYSTATIN. [Concomitant]
     Active Substance: NYSTATIN
     Route: 065
  24. VASOTEC [Concomitant]
     Active Substance: ENALAPRIL MALEATE
     Route: 065

REACTIONS (11)
  - Balance disorder [Recovered/Resolved]
  - Arthropathy [Unknown]
  - Wrong technique in product usage process [Unknown]
  - Dry eye [Unknown]
  - Influenza [Recovered/Resolved]
  - Inappropriate schedule of drug administration [Unknown]
  - Haemorrhage [Unknown]
  - Head injury [Recovered/Resolved]
  - Weight decreased [Unknown]
  - Haematemesis [Recovered/Resolved]
  - Product quality issue [Unknown]

NARRATIVE: CASE EVENT DATE: 201603
